FAERS Safety Report 13905711 (Version 1)
Quarter: 2017Q3

REPORT INFORMATION
  Report Type: Spontaneous
  Country: NL (occurrence: NL)
  Receive Date: 20170825
  Receipt Date: 20170825
  Transmission Date: 20171127
  Serious: Yes (Other)
  Sender: FDA-Public Use
  Company Number: NL-GLAXOSMITHKLINE-NL2017GSK131365

PATIENT
  Age: 69 Year
  Sex: Male
  Weight: 89 kg

DRUGS (4)
  1. LOSARTAN. [Concomitant]
     Active Substance: LOSARTAN
     Dosage: 50 MG, 1D
     Route: 048
  2. NEOTIGASON [Suspect]
     Active Substance: ACITRETIN
     Indication: HAND DERMATITIS
     Dosage: 10 MG, 1D
     Dates: start: 20170717, end: 20170723
  3. CARBASALAT CALCIUM [Concomitant]
     Dosage: 100 MG, 1D
     Route: 048
  4. DILTIAZEM. [Concomitant]
     Active Substance: DILTIAZEM
     Dosage: 90 MG, 1D
     Route: 048

REACTIONS (2)
  - Arrhythmia [Recovering/Resolving]
  - Exercise tolerance decreased [Recovering/Resolving]

NARRATIVE: CASE EVENT DATE: 20170719
